FAERS Safety Report 19426603 (Version 1)
Quarter: 2021Q2

REPORT INFORMATION
  Report Type: Spontaneous
  Country: FR (occurrence: FR)
  Receive Date: 20210617
  Receipt Date: 20210617
  Transmission Date: 20210717
  Serious: Yes (Other)
  Sender: FDA-Public Use
  Company Number: FR-ORGANON-O2106FRA001357

PATIENT
  Age: 3 Year
  Sex: Female

DRUGS (2)
  1. AERIUS (DESLORATADINE) [Suspect]
     Active Substance: DESLORATADINE
     Indication: PRODUCT USED FOR UNKNOWN INDICATION
     Dosage: UNK
  2. ADVIL [Suspect]
     Active Substance: IBUPROFEN
     Indication: PHARYNGITIS
     Dosage: 2 DOSAGE FORM, QD, (1 DF, BID)
     Route: 048
     Dates: start: 20210402, end: 20210404

REACTIONS (6)
  - Skin plaque [Unknown]
  - Hypersensitivity [Recovered/Resolved]
  - Joint swelling [Recovered/Resolved]
  - Gait inability [Recovered/Resolved]
  - Urticaria [Recovering/Resolving]
  - Oedema peripheral [Unknown]

NARRATIVE: CASE EVENT DATE: 20210404
